FAERS Safety Report 6511398-2 (Version None)
Quarter: 2009Q4

REPORT INFORMATION
  Report Type: 
  Country: None (occurrence: None)
  Receive Date: 20091222
  Receipt Date: 20090311
  Transmission Date: 20100525
  Serious: No
  Sender: FDA-Public Use
  Company Number: US-ASTRAZENECA-2009UW06376

PATIENT
  Sex: Male

DRUGS (4)
  1. CRESTOR [Suspect]
     Route: 048
  2. PROSTATE MEDICATION [Concomitant]
  3. ATENOLOL [Concomitant]
     Route: 048
  4. BABY ASPIRIN [Concomitant]

REACTIONS (1)
  - INSOMNIA [None]
